FAERS Safety Report 9779914 (Version 2)
Quarter: 2014Q1

REPORT INFORMATION
  Report Type: Spontaneous
  Country: IT (occurrence: IT)
  Receive Date: 20131223
  Receipt Date: 20140314
  Transmission Date: 20141002
  Serious: Yes (Hospitalization)
  Sender: FDA-Public Use
  Company Number: IT-PFIZER INC-2013365629

PATIENT
  Age: 67 Year
  Sex: Male

DRUGS (3)
  1. TORISEL [Suspect]
     Indication: CLEAR CELL RENAL CELL CARCINOMA
     Dosage: 25 MG, CYCLIC
     Route: 042
     Dates: start: 20130812, end: 20131010
  2. FUROSEMIDE [Concomitant]
     Dosage: 75 MG, UNK
     Route: 048
     Dates: start: 20131022, end: 20131112
  3. AUGMENTIN [Concomitant]
     Dosage: 1000 MG, UNK
     Route: 042

REACTIONS (2)
  - Dyspnoea exertional [Recovered/Resolved]
  - Gravitational oedema [Recovered/Resolved]
